FAERS Safety Report 21255573 (Version 10)
Quarter: 2023Q4

REPORT INFORMATION
  Report Type: Report from Study
  Country: PL (occurrence: PL)
  Receive Date: 20220825
  Receipt Date: 20231130
  Transmission Date: 20240110
  Serious: Yes (Hospitalization, Other)
  Sender: FDA-Public Use
  Company Number: PL-BRISTOL-MYERS SQUIBB COMPANY-2022-092510

PATIENT
  Age: 41 Year
  Sex: Male
  Weight: 95 kg

DRUGS (9)
  1. OZANIMOD [Suspect]
     Active Substance: OZANIMOD
     Indication: Crohn^s disease
     Dosage: MOST RECENT DOSE PRIOR TO EVENT RECEIVED ON 16-AUG-2022.?LAST DOSE OF STUDY THERAPY ON 17-AUG-2022.
     Route: 048
     Dates: start: 20220705, end: 20220817
  2. TRAMADOL [Concomitant]
     Active Substance: TRAMADOL\TRAMADOL HYDROCHLORIDE
     Indication: Spinal pain
     Route: 048
  3. TRAMADOL [Concomitant]
     Active Substance: TRAMADOL\TRAMADOL HYDROCHLORIDE
     Indication: Arthralgia
  4. MESALAMINE [Concomitant]
     Active Substance: MESALAMINE
     Indication: Crohn^s disease
     Route: 048
     Dates: start: 2012
  5. POTASSIUM CHLORIDE [Concomitant]
     Active Substance: POTASSIUM CHLORIDE
     Indication: Crohn^s disease
     Route: 048
     Dates: start: 2021
  6. SOLCIDIOL [Concomitant]
     Indication: Osteoporosis
     Dosage: 1 CAPSULE
     Route: 048
     Dates: start: 20220425
  7. CALCIUM CARBONATE [Concomitant]
     Active Substance: CALCIUM CARBONATE
     Indication: Osteoporosis
     Dosage: 1 CAPSULES
     Route: 048
     Dates: start: 20220425
  8. IBANDRONIC ACID [Concomitant]
     Active Substance: IBANDRONIC ACID
     Indication: Osteoporosis
     Route: 048
     Dates: start: 20220425
  9. PREDNISONE [Concomitant]
     Active Substance: PREDNISONE
     Indication: Crohn^s disease
     Route: 048
     Dates: start: 20220713

REACTIONS (1)
  - Liver injury [Recovered/Resolved]

NARRATIVE: CASE EVENT DATE: 20220817
